FAERS Safety Report 12605691 (Version 2)
Quarter: 2016Q4

REPORT INFORMATION
  Report Type: Spontaneous
  Country: US (occurrence: US)
  Receive Date: 20160729
  Receipt Date: 20161025
  Transmission Date: 20170207
  Serious: Yes (Other)
  Sender: FDA-Public Use
  Company Number: US-ALEMBIC PHARMACUETICALS LIMITED-2013SCAL000267

PATIENT

DRUGS (3)
  1. PRAMIPEXOLE DIHYDROCHLORIDE. [Suspect]
     Active Substance: PRAMIPEXOLE DIHYDROCHLORIDE
     Indication: PARKINSON^S DISEASE
     Dosage: 2.5 MG, QD
  2. PRAMIPEXOLE DIHYDROCHLORIDE. [Suspect]
     Active Substance: PRAMIPEXOLE DIHYDROCHLORIDE
     Indication: DEEP BRAIN STIMULATION
     Dosage: 4.5 MG, QD
     Route: 065
  3. PRAMIPEXOLE DIHYDROCHLORIDE. [Suspect]
     Active Substance: PRAMIPEXOLE DIHYDROCHLORIDE
     Dosage: ABOVE 4.5 MG DAILY

REACTIONS (5)
  - Abnormal behaviour [Recovering/Resolving]
  - Hypersexuality [Unknown]
  - Impulsive behaviour [Unknown]
  - Jealous delusion [Recovering/Resolving]
  - Gambling disorder [Unknown]
